FAERS Safety Report 21708774 (Version 2)
Quarter: 2023Q1

REPORT INFORMATION
  Report Type: Spontaneous
  Country: PL (occurrence: PL)
  Receive Date: 20221210
  Receipt Date: 20230111
  Transmission Date: 20230417
  Serious: Yes (Hospitalization, Other)
  Sender: FDA-Public Use
  Company Number: PL-Accord-287854

PATIENT
  Age: 50 Year
  Sex: Female

DRUGS (1)
  1. FUROSEMIDE [Suspect]
     Active Substance: FUROSEMIDE
     Indication: Oedema peripheral
     Dosage: 600 MILLIGRAM, ONCE A DAY (MAXIMUM DOSE OF 800-1000 MG/PER DAY, WITH AN AVERAGE OF 600 MG PER DAY)
     Route: 065

REACTIONS (5)
  - Nephrocalcinosis [Unknown]
  - Overdose [Unknown]
  - Drug abuse [Unknown]
  - Product administered from unauthorised provider [Unknown]
  - Intentional product misuse [Unknown]
